FAERS Safety Report 8397784-7 (Version None)
Quarter: 2012Q1

REPORT INFORMATION
  Report Type: 
  Country: None (occurrence: None)
  Receive Date: 20120323
  Receipt Date: 20110111
  Transmission Date: 20120608
  Serious: Yes (Hospitalization)
  Sender: FDA-Public Use
  Company Number: 163-21880-11010909

PATIENT
  Age: 46 Year
  Sex: Female

DRUGS (6)
  1. DEXAMETHASONE [Concomitant]
  2. TRAMADOL HCL [Concomitant]
  3. ACETAMINOPHEN [Concomitant]
  4. REVLIMID [Suspect]
     Indication: MULTIPLE MYELOMA
     Dosage: 15 MG, 1 IN 1 D, PO
     Route: 048
     Dates: start: 20100927
  5. BIRTH CONTROL (CONTRACEPTIVES) [Concomitant]
  6. ASPIRIN [Concomitant]

REACTIONS (1)
  - DEEP VEIN THROMBOSIS [None]
